FAERS Safety Report 16016369 (Version 1)
Quarter: 2019Q1

REPORT INFORMATION
  Report Type: Spontaneous
  Country: CA (occurrence: CA)
  Receive Date: 20190228
  Receipt Date: 20190228
  Transmission Date: 20190418
  Serious: Yes (Other)
  Sender: FDA-Public Use
  Company Number: CA-SA-2019SA054112

PATIENT
  Sex: Female

DRUGS (6)
  1. METHOTREXATE. [Suspect]
     Active Substance: METHOTREXATE
     Indication: RHEUMATOID ARTHRITIS
     Dosage: 25 MG
  2. HYDROXYCHLOROQUINE SULFATE. [Suspect]
     Active Substance: HYDROXYCHLOROQUINE SULFATE
     Indication: PRODUCT USED FOR UNKNOWN INDICATION
     Dosage: 400 MG, QD
  3. SARILUMAB [Suspect]
     Active Substance: SARILUMAB
     Indication: PRODUCT USED FOR UNKNOWN INDICATION
     Dosage: UNK
  4. ACTEMRA [Suspect]
     Active Substance: TOCILIZUMAB
     Indication: PRODUCT USED FOR UNKNOWN INDICATION
  5. LEFLUNOMIDE. [Suspect]
     Active Substance: LEFLUNOMIDE
     Indication: PRODUCT USED FOR UNKNOWN INDICATION
  6. ENBREL [Suspect]
     Active Substance: ETANERCEPT
     Indication: RHEUMATOID ARTHRITIS

REACTIONS (10)
  - Nausea [Unknown]
  - Hepatotoxicity [Unknown]
  - C-reactive protein increased [Unknown]
  - Joint swelling [Unknown]
  - Drug intolerance [Unknown]
  - Mucosal ulceration [Unknown]
  - Headache [Unknown]
  - Drug ineffective [Unknown]
  - Arthralgia [Unknown]
  - Synovitis [Unknown]
